FAERS Safety Report 14614016 (Version 1)
Quarter: 2018Q1

REPORT INFORMATION
  Report Type: Spontaneous
  Country: US (occurrence: US)
  Receive Date: 20180308
  Receipt Date: 20180308
  Transmission Date: 20180509
  Serious: Yes (Hospitalization)
  Sender: FDA-Public Use
  Company Number: US-ALLERGAN-1812213US

PATIENT
  Age: 57 Year
  Sex: Female

DRUGS (1)
  1. RESTASIS [Suspect]
     Active Substance: CYCLOSPORINE
     Indication: DRY EYE
     Dosage: UNK
     Route: 047
     Dates: start: 2017, end: 2017

REACTIONS (11)
  - Somnambulism [Unknown]
  - Joint injury [Recovered/Resolved]
  - Fall [Recovered/Resolved]
  - Limb injury [Recovered/Resolved]
  - Concussion [Unknown]
  - Dry eye [Unknown]
  - Eye irritation [Recovered/Resolved]
  - Memory impairment [Not Recovered/Not Resolved]
  - Contusion [Unknown]
  - Injury [Unknown]
  - Product storage error [Unknown]

NARRATIVE: CASE EVENT DATE: 2017
